FAERS Safety Report 9980307 (Version 4)
Quarter: 2018Q4

REPORT INFORMATION
  Report Type: Spontaneous
  Country: BR (occurrence: BR)
  Receive Date: 20140307
  Receipt Date: 20181113
  Transmission Date: 20190205
  Serious: Yes (Other)
  Sender: FDA-Public Use
  Company Number: BR-AMGEN-BRASP2013049899

PATIENT
  Age: 60 Year
  Sex: Female
  Weight: 74 kg

DRUGS (13)
  1. ENBREL [Suspect]
     Active Substance: ETANERCEPT
     Dosage: 50 MG, ONCE WEEKLY
     Route: 058
     Dates: start: 201302
  2. ENBREL [Suspect]
     Active Substance: ETANERCEPT
     Indication: RHEUMATOID ARTHRITIS
     Dosage: 25 MG, 2 TIMES/WK
     Route: 065
     Dates: start: 2010, end: 201302
  3. OMEPRAZOLE. [Concomitant]
     Active Substance: OMEPRAZOLE
     Indication: GASTRITIS
     Dosage: AS NEEDED
     Dates: start: 1998
  4. PAROXETINE. [Concomitant]
     Active Substance: PAROXETINE
     Indication: DEPRESSED MOOD
  5. FOLIC ACID. [Concomitant]
     Active Substance: FOLIC ACID
     Dosage: UNSPECIFIED DOSE, THREE TIMES WEEKLY
     Dates: start: 1998
  6. DICLOFENAC [Concomitant]
     Active Substance: DICLOFENAC
     Dosage: IN CASE OF CRISIS
     Dates: start: 1998
  7. PAROXETINE. [Concomitant]
     Active Substance: PAROXETINE
     Indication: DYSPNOEA
     Dosage: UNK
  8. PAROXETINE. [Concomitant]
     Active Substance: PAROXETINE
     Indication: DEPRESSED MOOD
  9. METICORTEN [Concomitant]
     Active Substance: PREDNISONE
     Dosage: STRENGTH 5MG
     Dates: start: 1998
  10. PAROXETINE. [Concomitant]
     Active Substance: PAROXETINE
     Indication: CRYING
     Dosage: UNK
     Dates: start: 1998
  11. PAROXETINE. [Concomitant]
     Active Substance: PAROXETINE
     Indication: DYSPNOEA
     Dosage: UNK
  12. ENBREL [Suspect]
     Active Substance: ETANERCEPT
     Dosage: UNK
     Route: 065
  13. METHOTREXATE. [Concomitant]
     Active Substance: METHOTREXATE
     Dosage: 7 TABLETS OF 2.5MG (17.5 MG), ONCE WEEKLY
     Dates: start: 1998

REACTIONS (15)
  - Osteoporosis [Unknown]
  - Injection site erythema [Recovered/Resolved]
  - Fall [Unknown]
  - Injection site pain [Unknown]
  - Bone loss [Unknown]
  - Injection site irritation [Not Recovered/Not Resolved]
  - Hypersensitivity [Recovered/Resolved]
  - Product administered at inappropriate site [Unknown]
  - Injection site dryness [Recovered/Resolved]
  - Injection site swelling [Recovered/Resolved]
  - Injection site mass [Recovered/Resolved]
  - Pain [Unknown]
  - Injection site pruritus [Recovered/Resolved]
  - Necrosis [Unknown]
  - Injection site hypersensitivity [Recovered/Resolved]

NARRATIVE: CASE EVENT DATE: 201305
